FAERS Safety Report 6664770-4 (Version None)
Quarter: 2010Q1

REPORT INFORMATION
  Report Type: 
  Country: None (occurrence: None)
  Receive Date: 20100330
  Receipt Date: 20100319
  Transmission Date: 20100710
  Serious: Yes (Hospitalization, Other)
  Sender: FDA-Public Use
  Company Number: LEO-2010-00228

PATIENT
  Age: 22 Year
  Sex: Female

DRUGS (2)
  1. INNOHEP [Suspect]
     Indication: PROPHYLAXIS
     Dosage: 14000 IU, 1 IN 1 D), SUBCUTANEOUS
     Route: 058
     Dates: start: 20060411, end: 20060502
  2. WARFARIN SODIUM [Concomitant]

REACTIONS (2)
  - ABORTION MISSED [None]
  - DRUG EXPOSURE DURING PREGNANCY [None]
